FAERS Safety Report 21440643 (Version 1)
Quarter: 2022Q4

REPORT INFORMATION
  Report Type: Report from Study
  Country: US (occurrence: None)
  Receive Date: 20221011
  Receipt Date: 20221011
  Transmission Date: 20230113
  Serious: Yes (Hospitalization)
  Sender: FDA-Public Use
  Company Number: US-Eisai Medical Research-EC-2022-125226

PATIENT
  Age: 65 Year
  Sex: Female
  Weight: 81 kg

DRUGS (18)
  1. LENVIMA [Suspect]
     Active Substance: LENVATINIB
     Indication: Renal cell carcinoma
     Route: 048
     Dates: start: 20220812, end: 2022
  2. LENVIMA [Suspect]
     Active Substance: LENVATINIB
     Indication: Metastases to liver
  3. EVEROLIMUS [Suspect]
     Active Substance: EVEROLIMUS
     Indication: Renal cell carcinoma
     Dosage: FREQUENCY AND DOSE UNKNOWN
     Route: 048
     Dates: end: 2022
  4. EVEROLIMUS [Suspect]
     Active Substance: EVEROLIMUS
     Indication: Metastases to liver
  5. EFFEXOR XR [Concomitant]
     Active Substance: VENLAFAXINE HYDROCHLORIDE
  6. PROTONIX [Concomitant]
     Active Substance: PANTOPRAZOLE SODIUM
  7. NORCO [Concomitant]
     Active Substance: ACETAMINOPHEN\HYDROCODONE BITARTRATE
  8. AMLODIPINE BESYLATE [Concomitant]
     Active Substance: AMLODIPINE BESYLATE
  9. FIORINAL [Concomitant]
     Active Substance: ASPIRIN\BUTALBITAL\CAFFEINE
  10. ABILIFY [Concomitant]
     Active Substance: ARIPIPRAZOLE
  11. VALSARTAN [Concomitant]
     Active Substance: VALSARTAN
  12. BIOTIN [Concomitant]
     Active Substance: BIOTIN
  13. OSTEO-BIFLEX [Concomitant]
  14. MINERALS\VITAMINS [Concomitant]
     Active Substance: MINERALS\VITAMINS
  15. CRANBERRY [Concomitant]
     Active Substance: CRANBERRY
  16. VITAMINS [Concomitant]
     Active Substance: VITAMINS
  17. BUTALBITAL-ACETAMINOPHEN-CAFFE [Concomitant]
  18. HYDROCODONE BITARTRATE AND ACETAMINOPHEN [Concomitant]
     Active Substance: ACETAMINOPHEN\HYDROCODONE BITARTRATE

REACTIONS (3)
  - Dehydration [Unknown]
  - Diarrhoea [Unknown]
  - Hypotension [Unknown]

NARRATIVE: CASE EVENT DATE: 20220101
